FAERS Safety Report 24411343 (Version 1)
Quarter: 2024Q4

REPORT INFORMATION
  Report Type: Report from Study
  Country: BR (occurrence: BR)
  Receive Date: 20241008
  Receipt Date: 20241008
  Transmission Date: 20250114
  Serious: Yes (Other)
  Sender: UCB
  Company Number: BR-UCBSA-2024051367

PATIENT
  Sex: Male

DRUGS (1)
  1. LEVETIRACETAM [Suspect]
     Active Substance: LEVETIRACETAM
     Indication: Product used for unknown indication
     Dosage: 250 MILLIGRAM, 2X/DAY (BID) (MORNING AND NIGHT)

REACTIONS (5)
  - Seizure [Unknown]
  - Loss of consciousness [Unknown]
  - Mood altered [Unknown]
  - Nodule [Unknown]
  - Mass excision [Unknown]
